FAERS Safety Report 8637112 (Version 4)
Quarter: 2014Q2

REPORT INFORMATION
  Report Type: Spontaneous
  Country: US (occurrence: US)
  Receive Date: 20120627
  Receipt Date: 20140404
  Transmission Date: 20141212
  Serious: Yes (Hospitalization, Other)
  Sender: FDA-Public Use
  Company Number: US-ASTRAZENECA-2012SE35475

PATIENT
  Age: 46 Year
  Sex: Female
  Weight: 65.3 kg

DRUGS (32)
  1. NEXIUM [Suspect]
     Indication: GASTROOESOPHAGEAL REFLUX DISEASE
     Route: 048
     Dates: start: 2004
  2. NEXIUM [Suspect]
     Indication: GASTROOESOPHAGEAL REFLUX DISEASE
     Route: 048
     Dates: start: 20100415
  3. NEXIUM [Suspect]
     Indication: GASTROOESOPHAGEAL REFLUX DISEASE
     Route: 048
     Dates: start: 20110905
  4. NEXIUM [Suspect]
     Indication: GASTROOESOPHAGEAL REFLUX DISEASE
     Route: 048
     Dates: start: 20110614
  5. CRESTOR [Concomitant]
     Indication: BLOOD CHOLESTEROL ABNORMAL
     Route: 048
     Dates: start: 20120220
  6. SUPER B COMPLEX [Concomitant]
  7. PREMARIN [Concomitant]
     Indication: HORMONE LEVEL ABNORMAL
     Route: 048
     Dates: start: 20090125
  8. LOPRESSOR [Concomitant]
     Indication: BLOOD PRESSURE ABNORMAL
     Dates: start: 20130318
  9. BETHANECOL [Concomitant]
     Indication: BLADDER DISORDER
  10. ALPRAZOLAM [Concomitant]
     Indication: SLEEP DISORDER
  11. ALPRAZOLAM [Concomitant]
     Indication: DEPRESSION
  12. HYDROCODONE [Concomitant]
     Indication: PAIN
  13. AMITIZA [Concomitant]
     Indication: BLOOD PRESSURE ABNORMAL
     Dates: start: 20100731
  14. FOLBIC [Concomitant]
     Dates: start: 20120613
  15. HYDROCODON ACTAMINOPHEN [Concomitant]
     Dosage: 5-500
     Dates: start: 20110906
  16. LEVOTHYROXINE [Concomitant]
     Dates: start: 20110905
  17. LEVOTHYROXINE [Concomitant]
     Dates: start: 20090315
  18. LISINOPRIL [Concomitant]
     Route: 048
     Dates: start: 20120912
  19. LISINOPRIL [Concomitant]
     Route: 048
     Dates: start: 20090125
  20. METOCLOPRAMIDE [Concomitant]
     Dates: start: 20121204
  21. QUETIAPINE FUMARATE [Concomitant]
     Dates: start: 20130102
  22. SERTRALINE HCL [Concomitant]
     Dates: start: 20120628
  23. SERTRALINE HCL [Concomitant]
     Dates: start: 20120929
  24. SIMVASTATIN [Concomitant]
     Dates: start: 20090125
  25. AMLODIPINE BESYLATE [Concomitant]
     Dates: start: 20100627
  26. OMEPRAZOLE [Concomitant]
     Route: 048
     Dates: start: 20090410
  27. LEXAPRO [Concomitant]
     Dates: start: 20090410
  28. HYDROCHLOROTHIAZIDE [Concomitant]
     Dates: start: 20090805
  29. TOPIRAMATE [Concomitant]
     Dates: start: 20110308
  30. METOPROLOL SUCCINATE [Concomitant]
     Route: 048
     Dates: start: 20081113
  31. GABAPENTIN [Concomitant]
     Route: 048
     Dates: start: 20100207
  32. FEXOFENADINE HCL [Concomitant]
     Dates: start: 20090218

REACTIONS (23)
  - Skeletal injury [Unknown]
  - Gastric disorder [Unknown]
  - Pain [Unknown]
  - Joint dislocation [Unknown]
  - Diabetic neuropathy [Unknown]
  - Osteoporosis [Unknown]
  - Foot fracture [Unknown]
  - Arthritis [Unknown]
  - Calcium deficiency [Unknown]
  - Bone disorder [Unknown]
  - Hypovitaminosis [Unknown]
  - Bone pain [Unknown]
  - Type 1 diabetes mellitus [Unknown]
  - Hyperparathyroidism [Unknown]
  - Vitamin D deficiency [Unknown]
  - Hypothyroidism [Unknown]
  - Impaired gastric emptying [Unknown]
  - Back pain [Unknown]
  - Osteomalacia [Unknown]
  - Osteoarthritis [Unknown]
  - Spinal osteoarthritis [Unknown]
  - Arthropathy [Unknown]
  - Depression [Unknown]
